FAERS Safety Report 9989358 (Version 1)
Quarter: 2013Q4

REPORT INFORMATION
  Report Type: Spontaneous
  Country: US (occurrence: None)
  Receive Date: 20131030
  Receipt Date: 20131030
  Transmission Date: 20140711
  Serious: Yes (Hospitalization)
  Sender: FDA-Public Use
  Company Number: GAM-303-13-US

PATIENT
  Age: 7 Year
  Sex: Male
  Weight: 21 kg

DRUGS (20)
  1. OCTAGAM [Suspect]
     Indication: IMMUNODEFICIENCY COMMON VARIABLE
     Dosage: 1X1/CYCLICAL NOT OTHERWISE SPEC
     Route: 042
     Dates: start: 20130827, end: 20130916
  2. LEVOTHYROXINE [Concomitant]
  3. ACETAMINOPHEN AND OXYCODONE [Concomitant]
  4. DEXLANSOPRAZOLE [Concomitant]
  5. MELOXICAM [Concomitant]
  6. AMITRIPTYLINE [Concomitant]
  7. ESTRADIOL [Concomitant]
  8. DIPHENHYDRAMINE [Concomitant]
  9. LORAZEPAM [Concomitant]
  10. METHYLPREDNISOLONE [Concomitant]
  11. PREDNISOLONE [Concomitant]
  12. ZOLPIDEM [Concomitant]
  13. SOMATROPIN [Concomitant]
  14. BECLOMETASONE [Concomitant]
  15. LEVALBUTEROL [Concomitant]
  16. MONTELUKAST [Concomitant]
  17. LEVOTHYROXINE [Concomitant]
  18. FLUTICASONE [Concomitant]
  19. TRIAMCINOLONE [Concomitant]
  20. POLYETHYLENE GLYCOL [Concomitant]

REACTIONS (6)
  - Headache [None]
  - Oropharyngeal pain [None]
  - Cough [None]
  - Middle ear effusion [None]
  - Pneumonia [None]
  - Ear disorder [None]
